FAERS Safety Report 4766878-7 (Version None)
Quarter: 2005Q3

REPORT INFORMATION
  Report Type: 
  Country: None (occurrence: None)
  Receive Date: 20050909
  Receipt Date: 20050824
  Transmission Date: 20060218
  Serious: Yes (Death)
  Sender: FDA-Public Use
  Company Number: 2005-DE-03419GD

PATIENT
  Age: 36 Year
  Sex: Female

DRUGS (5)
  1. CYCLOPHOSPHAMIDE [Suspect]
     Indication: STEM CELL TRANSPLANT
     Dosage: HIGH DOSE
     Dates: start: 20020101
  2. N-ACETYLSYSTEINE (ACETYLCYSTEINE) [Suspect]
     Indication: VENOOCCLUSIVE DISEASE
     Dates: start: 20020101
  3. BUSULPHAN (BUSLFAN) [Suspect]
     Indication: STEM CELL TRANSPLANT
     Dates: start: 20020101
  4. DEFIBROTIDE (DEFIBROTIDE) [Suspect]
     Indication: VENOOCCLUSIVE DISEASE
     Dosage: 30 MG/KG IN FOUR DIVIDED DOSES, INCREASED TO 40 MG/KG AFTER TWO DOSES
     Dates: start: 20020101
  5. URSODIOL [Suspect]
     Indication: VENOOCCLUSIVE DISEASE
     Dates: start: 20020101

REACTIONS (8)
  - ASCITES [None]
  - DRUG INEFFECTIVE [None]
  - HAEMODIALYSIS [None]
  - HEPATIC FAILURE [None]
  - RENAL IMPAIRMENT [None]
  - RESPIRATORY FAILURE [None]
  - SEPSIS [None]
  - VENOOCCLUSIVE LIVER DISEASE [None]
